FAERS Safety Report 14052122 (Version 2)
Quarter: 2017Q4

REPORT INFORMATION
  Report Type: Spontaneous
  Country: IT (occurrence: IT)
  Receive Date: 20171005
  Receipt Date: 20171206
  Transmission Date: 20180321
  Serious: Yes (Hospitalization)
  Sender: FDA-Public Use
  Company Number: IT-VALIDUS PHARMACEUTICALS LLC-IT-2017VAL001397

PATIENT
  Age: 82 Year
  Sex: Female

DRUGS (14)
  1. FUROSEMIDE. [Suspect]
     Active Substance: FUROSEMIDE
     Indication: DIURETIC THERAPY
     Dosage: 100 MG, BID
     Route: 042
     Dates: start: 198802
  2. INDOMETHACIN                       /00003801/ [Concomitant]
     Active Substance: INDOMETHACIN
     Indication: PRODUCT USED FOR UNKNOWN INDICATION
     Dosage: UNK
  3. BUFLOMEDIL HYDROCHLORIDE [Concomitant]
     Active Substance: BUFLOMEDIL HYDROCHLORIDE
     Indication: PRODUCT USED FOR UNKNOWN INDICATION
     Dosage: UNK
     Dates: start: 198710
  4. TICLOPIDINE                        /00543202/ [Concomitant]
     Indication: PRODUCT USED FOR UNKNOWN INDICATION
     Dosage: UNK
     Dates: start: 198710
  5. AMPICILLIN [Suspect]
     Active Substance: AMPICILLIN
     Indication: PNEUMONIA
     Dosage: 2 G, QD
     Route: 030
     Dates: start: 198801
  6. FUROSEMIDE. [Suspect]
     Active Substance: FUROSEMIDE
     Dosage: 200 MG, BID
     Route: 042
     Dates: start: 1988
  7. FUROSEMIDE. [Suspect]
     Active Substance: FUROSEMIDE
     Dosage: 250 MG, BID
     Route: 065
     Dates: start: 1988
  8. SPIRONOLACTONE. [Suspect]
     Active Substance: SPIRONOLACTONE
     Indication: DIURETIC THERAPY
     Dosage: 100 MG, QD
     Route: 048
     Dates: start: 198802
  9. SALINE                             /00075401/ [Concomitant]
     Active Substance: SODIUM CHLORIDE
     Indication: PRODUCT USED FOR UNKNOWN INDICATION
     Dosage: UNK
     Dates: start: 198802
  10. FUROSEMIDE. [Suspect]
     Active Substance: FUROSEMIDE
     Dosage: 250 MG, QD
     Route: 065
     Dates: start: 1988
  11. FUROSEMIDE. [Suspect]
     Active Substance: FUROSEMIDE
     Dosage: 125 MG, QD
     Route: 065
     Dates: start: 1988
  12. NORFLOXACIN [Concomitant]
     Active Substance: NORFLOXACIN
     Indication: PRODUCT USED FOR UNKNOWN INDICATION
     Dosage: UNK
     Dates: start: 198803
  13. HYDROCHLOROTHIAZIDE W/SPIRONOLACTONE [Concomitant]
     Indication: PRODUCT USED FOR UNKNOWN INDICATION
     Dosage: UNK
  14. AMPICILLIN [Suspect]
     Active Substance: AMPICILLIN
     Dosage: 1 G, QD
     Route: 030
     Dates: start: 198801

REACTIONS (25)
  - Decreased appetite [Recovered/Resolved]
  - Nausea [Recovered/Resolved]
  - Nephrotic syndrome [Recovered/Resolved]
  - Blood urea increased [Recovered/Resolved]
  - Generalised oedema [Recovered/Resolved]
  - Renal impairment [Recovered/Resolved]
  - Acute kidney injury [Recovered/Resolved]
  - Oedema peripheral [Recovered/Resolved]
  - Weight increased [Recovered/Resolved]
  - Asthenia [Recovered/Resolved]
  - Alpha 1 foetoprotein increased [Recovered/Resolved]
  - Creatinine renal clearance decreased [Recovered/Resolved]
  - Blood lactate dehydrogenase decreased [Recovered/Resolved]
  - Gamma-glutamyltransferase increased [Recovered/Resolved]
  - Vomiting [Recovered/Resolved]
  - Hypokalaemia [Recovered/Resolved]
  - Eosinophilia [Recovering/Resolving]
  - Blood creatinine increased [Recovered/Resolved]
  - Blood alkaline phosphatase increased [Recovered/Resolved]
  - Nephrolithiasis [Recovered/Resolved]
  - Drug hypersensitivity [Recovering/Resolving]
  - Tubulointerstitial nephritis [Recovered/Resolved]
  - Renal tubular disorder [Recovered/Resolved]
  - Oliguria [Recovered/Resolved]
  - Breath sounds abnormal [Recovered/Resolved]

NARRATIVE: CASE EVENT DATE: 1988
